FAERS Safety Report 7988681-7 (Version None)
Quarter: 2011Q4

REPORT INFORMATION
  Report Type: 
  Country: None (occurrence: None)
  Receive Date: 20111218
  Receipt Date: 20111212
  Transmission Date: 20120403
  Serious: Yes (Death, Congenital Anomaly, Other)
  Sender: FDA-Public Use
  Company Number: US-ELI_LILLY_AND_COMPANY-US201112004422

PATIENT
  Sex: Female

DRUGS (1)
  1. CYMBALTA [Suspect]
     Route: 064

REACTIONS (3)
  - HEART DISEASE CONGENITAL [None]
  - DEATH NEONATAL [None]
  - FOETAL EXPOSURE DURING PREGNANCY [None]
